FAERS Safety Report 10168905 (Version 2)
Quarter: 2014Q2

REPORT INFORMATION
  Report Type: Spontaneous
  Country: DE (occurrence: None)
  Receive Date: 20140509
  Receipt Date: 20140602
  Transmission Date: 20141212
  Serious: Yes (Other)
  Sender: FDA-Public Use
  Company Number: DE-20140061

PATIENT
  Age: 20 Year
  Sex: Male

DRUGS (2)
  1. DOTAREM (GADOTERIC ACID) [Suspect]
     Indication: NUCLEAR MAGNETIC RESONANCE IMAGING
     Dosage: 16 ML, 1 IN 1 D, INTRAVENOUS (NOT OTHERWISE SPECFIED)
     Route: 042
     Dates: start: 20140225, end: 20140225
  2. DOTAREM (GADOTERIC ACID) [Suspect]
     Indication: CRANIAL NERVE DISORDER
     Dosage: 16 ML, 1 IN 1 D, INTRAVENOUS (NOT OTHERWISE SPECFIED)
     Route: 042
     Dates: start: 20140225, end: 20140225

REACTIONS (8)
  - Depressed level of consciousness [None]
  - Tremor [None]
  - Dizziness [None]
  - Apathy [None]
  - Headache [None]
  - Paraesthesia [None]
  - Nervousness [None]
  - Epstein-Barr virus infection [None]
